FAERS Safety Report 7243950-3 (Version None)
Quarter: 2011Q1

REPORT INFORMATION
  Report Type: 
  Country: None (occurrence: None)
  Receive Date: 20110125
  Receipt Date: 20110120
  Transmission Date: 20110831
  Serious: Yes (Hospitalization)
  Sender: FDA-Public Use
  Company Number: Z0007237A

PATIENT
  Sex: Female
  Weight: 65 kg

DRUGS (7)
  1. FILGRASTIM [Concomitant]
     Indication: LEUKOPENIA
     Dosage: 300MCG PER DAY
     Route: 058
     Dates: start: 20101230, end: 20101231
  2. PARACETAMOL [Concomitant]
     Dosage: 250MG UNKNOWN
     Route: 048
     Dates: start: 20101229, end: 20101229
  3. PIPERACILLIN AND TAZOBACTAM [Concomitant]
     Indication: INFECTION
     Dosage: 4.5MG EVERY 3 DAYS
     Route: 042
     Dates: start: 20101230, end: 20110101
  4. LAPATINIB [Suspect]
     Dosage: 1250MG PER DAY
     Route: 048
     Dates: start: 20101215
  5. HEXETIDIN [Concomitant]
     Indication: INFECTION
     Dosage: .1PCT EVERY 4 DAYS
     Route: 061
     Dates: start: 20110101
  6. VINORELBINE [Suspect]
     Dosage: 20MGM2 CYCLIC
     Route: 042
     Dates: start: 20101215
  7. ROXITHROMYCIN [Concomitant]
     Indication: COUGH
     Dosage: 300MG PER DAY
     Route: 048
     Dates: start: 20101230, end: 20101230

REACTIONS (5)
  - PYREXIA [None]
  - NEUTROPENIA [None]
  - DIZZINESS [None]
  - INFECTION [None]
  - COUGH [None]
